FAERS Safety Report 7889889-1 (Version None)
Quarter: 2011Q4

REPORT INFORMATION
  Report Type: 
  Country: None (occurrence: None)
  Receive Date: 20111103
  Receipt Date: 20111026
  Transmission Date: 20120403
  Serious: Yes (Other)
  Sender: FDA-Public Use
  Company Number: JP-GLAXOSMITHKLINE-B0758926A

PATIENT
  Age: 48 Year
  Sex: Male

DRUGS (9)
  1. CLARITHROMYCIN [Concomitant]
     Route: 048
  2. DEXTROMETHORPHAN HYDROBROMIDE [Concomitant]
     Route: 048
  3. FLUTICASONE PROPIONATE/SALMETEROL [Suspect]
     Indication: PRODUCT USED FOR UNKNOWN INDICATION
     Route: 055
  4. HUSTAZOL [Concomitant]
     Route: 048
  5. ASVERIN [Concomitant]
     Route: 048
  6. MEPTIN [Concomitant]
     Route: 065
  7. ONON [Concomitant]
     Route: 048
  8. CODEINE PHOSPHATE [Concomitant]
     Route: 048
  9. DIOVAN [Concomitant]
     Route: 048

REACTIONS (1)
  - LOSS OF CONSCIOUSNESS [None]
